FAERS Safety Report 17751916 (Version 3)
Quarter: 2020Q4

REPORT INFORMATION
  Report Type: Spontaneous
  Country: AU (occurrence: AU)
  Receive Date: 20200506
  Receipt Date: 20201210
  Transmission Date: 20210113
  Serious: Yes (Other)
  Sender: FDA-Public Use
  Company Number: AU-PFIZER INC-2020179701

PATIENT
  Age: 16 Year
  Sex: Male

DRUGS (8)
  1. PROPOFOL. [Suspect]
     Active Substance: PROPOFOL
     Indication: INDUCTION OF ANAESTHESIA
     Dosage: 150 MG, UNK
  2. PROPOFOL. [Suspect]
     Active Substance: PROPOFOL
     Dosage: BOLUS OF 50 MG
  3. HALOTHANE. [Concomitant]
     Active Substance: HALOTHANE
     Indication: INDUCTION OF ANAESTHESIA
     Dosage: UNK
  4. PHENERGAN [Concomitant]
     Active Substance: PROMETHAZINE HYDROCHLORIDE
     Indication: PREMEDICATION
     Dosage: UNK
     Route: 030
  5. NITROUS OXIDE. [Concomitant]
     Active Substance: NITROUS OXIDE
     Indication: INDUCTION OF ANAESTHESIA
     Dosage: UNK
  6. BUPIVACAINE. [Concomitant]
     Active Substance: BUPIVACAINE
     Indication: INDUCTION OF ANAESTHESIA
     Dosage: 8 ML
  7. OMNOPON [OPIUM ALKALOIDS TOTAL] [Concomitant]
     Indication: PREMEDICATION
     Dosage: UNK
     Route: 030
  8. OXYGEN. [Concomitant]
     Active Substance: OXYGEN
     Indication: INDUCTION OF ANAESTHESIA
     Dosage: UNK

REACTIONS (1)
  - Generalised tonic-clonic seizure [Recovered/Resolved]
